FAERS Safety Report 18417573 (Version 2)
Quarter: 2021Q1

REPORT INFORMATION
  Report Type: Spontaneous
  Country: US (occurrence: US)
  Receive Date: 20201022
  Receipt Date: 20210122
  Transmission Date: 20210419
  Serious: No
  Sender: FDA-Public Use
  Company Number: 2020SGN03042

PATIENT
  Sex: Female

DRUGS (3)
  1. TUKYSA [Suspect]
     Active Substance: TUCATINIB
     Indication: BREAST CANCER FEMALE
     Dosage: 300 MG, BID
  2. HERCEPTIN [Suspect]
     Active Substance: TRASTUZUMAB
     Indication: BREAST CANCER FEMALE
  3. CAPECITABINE. [Suspect]
     Active Substance: CAPECITABINE
     Indication: BREAST CANCER FEMALE
     Dosage: 1500 MG, BID

REACTIONS (12)
  - Unevaluable event [Unknown]
  - Fatigue [Unknown]
  - Dehydration [Unknown]
  - Diarrhoea [Not Recovered/Not Resolved]
  - White blood cell count decreased [Recovering/Resolving]
  - Weight decreased [Unknown]
  - Weight increased [Unknown]
  - Neuralgia [Unknown]
  - Thirst [Unknown]
  - Illness [Unknown]
  - Haematochezia [Unknown]
  - Neoplasm malignant [Unknown]
